FAERS Safety Report 23706566 (Version 2)
Quarter: 2024Q2

REPORT INFORMATION
  Report Type: Spontaneous
  Country: US (occurrence: US)
  Receive Date: 20240404
  Receipt Date: 20240409
  Transmission Date: 20240715
  Serious: Yes (Other)
  Sender: FDA-Public Use
  Company Number: US-PFIZER INC-PV202400042898

PATIENT
  Age: 81 Year
  Sex: Female
  Weight: 59.42 kg

DRUGS (2)
  1. IBRANCE [Suspect]
     Active Substance: PALBOCICLIB
     Indication: Breast cancer female
     Dosage: 125 MG
  2. IBRANCE [Suspect]
     Active Substance: PALBOCICLIB
     Dosage: 100MG; ONE TABLET BY MOUTH WITH FOOD DAILY FOR 21 DAYS AND 7 DAYS OFF
     Route: 048

REACTIONS (6)
  - Hip surgery [Unknown]
  - Hip fracture [Unknown]
  - Cervical vertebral fracture [Unknown]
  - Lumbar vertebral fracture [Unknown]
  - Neck pain [Unknown]
  - Fall [Unknown]

NARRATIVE: CASE EVENT DATE: 20240226
